FAERS Safety Report 20354439 (Version 1)
Quarter: 2022Q1

REPORT INFORMATION
  Report Type: Spontaneous
  Country: US (occurrence: US)
  Receive Date: 20220120
  Receipt Date: 20220120
  Transmission Date: 20220423
  Serious: Yes (Other)
  Sender: FDA-Public Use
  Company Number: US-drreddys-LIT/USA/22/0146007

PATIENT
  Age: 39 Year
  Sex: Female

DRUGS (3)
  1. SIROLIMUS [Suspect]
     Active Substance: SIROLIMUS
     Indication: Acute lymphocytic leukaemia
     Dates: start: 201409
  2. RUXOLITINIB [Concomitant]
     Active Substance: RUXOLITINIB
     Indication: Acute lymphocytic leukaemia
  3. PIRFENIDONE [Concomitant]
     Active Substance: PIRFENIDONE
     Indication: Idiopathic pulmonary fibrosis

REACTIONS (1)
  - Alveolar proteinosis [Unknown]
